FAERS Safety Report 20944704 (Version 1)
Quarter: 2022Q2

REPORT INFORMATION
  Report Type: Spontaneous
  Country: US (occurrence: None)
  Receive Date: 20220609
  Receipt Date: 20220609
  Transmission Date: 20220721
  Serious: No
  Sender: FDA-Public Use
  Company Number: None

PATIENT
  Age: 61 Year
  Sex: Female
  Weight: 103.3 kg

DRUGS (1)
  1. GLATIRAMER [Suspect]
     Active Substance: GLATIRAMER
     Indication: Product used for unknown indication
     Dosage: 40 MG  TIW SC?
     Route: 058
     Dates: start: 202001, end: 202005

REACTIONS (6)
  - Palpitations [None]
  - Chills [None]
  - Chills [None]
  - Condition aggravated [None]
  - Trigeminal nerve disorder [None]
  - Pharyngeal swelling [None]

NARRATIVE: CASE EVENT DATE: 20220311
